FAERS Safety Report 18129207 (Version 1)
Quarter: 2020Q3

REPORT INFORMATION
  Report Type: Spontaneous
  Country: US (occurrence: US)
  Receive Date: 20200809
  Receipt Date: 20200809
  Transmission Date: 20201103
  Serious: Yes (Disabling)
  Sender: FDA-Public Use
  Company Number: None

PATIENT
  Age: 28 Year
  Sex: Female
  Weight: 47.7 kg

DRUGS (5)
  1. LEVOTHYROXINE. [Concomitant]
     Active Substance: LEVOTHYROXINE
  2. EMGALITY [Suspect]
     Active Substance: GALCANEZUMAB-GNLM
     Indication: MIGRAINE
     Dosage: ?          QUANTITY:1 INJECTION(S);?
     Route: 058
     Dates: start: 20200521, end: 20200621
  3. ALBUTEROL INHALER [Concomitant]
     Active Substance: ALBUTEROL
  4. ESTARYLLA BIRTH CONTROL [Concomitant]
  5. FIORICET [Concomitant]
     Active Substance: ACETAMINOPHEN\BUTALBITAL\CAFFEINE

REACTIONS (1)
  - Menstruation irregular [None]

NARRATIVE: CASE EVENT DATE: 20200521
